FAERS Safety Report 7206492-7 (Version None)
Quarter: 2011Q1

REPORT INFORMATION
  Report Type: 
  Country: None (occurrence: None)
  Receive Date: 20110103
  Receipt Date: 20101227
  Transmission Date: 20110831
  Serious: Yes (Other)
  Sender: FDA-Public Use
  Company Number: FR-SANOFI-AVENTIS-2010SA077862

PATIENT
  Age: 45 Year
  Sex: Male

DRUGS (5)
  1. TAVANIC [Suspect]
     Route: 065
     Dates: start: 20101003, end: 20101012
  2. SERETIDE [Concomitant]
     Route: 065
  3. LOVENOX [Suspect]
     Indication: THROMBOSIS PROPHYLAXIS
     Route: 058
     Dates: start: 20101003, end: 20101012
  4. ROCEPHIN [Suspect]
     Route: 065
     Dates: start: 20101003, end: 20101011
  5. SPIRIVA [Concomitant]
     Route: 065

REACTIONS (2)
  - EOSINOPHILIA [None]
  - THROMBOCYTOSIS [None]
